FAERS Safety Report 8444307-X (Version None)
Quarter: 2012Q2

REPORT INFORMATION
  Report Type: 
  Country: None (occurrence: None)
  Receive Date: 20120618
  Receipt Date: 20120606
  Transmission Date: 20120825
  Serious: Yes (Other)
  Sender: FDA-Public Use
  Company Number: US-SANOFI-AVENTIS-2012SA040563

PATIENT
  Age: 56 Year
  Sex: Male

DRUGS (2)
  1. FEXOFENADINE HYDROCHLORIDE [Suspect]
     Route: 048
  2. FEXOFENADINE HYDROCHLORIDE [Suspect]
     Route: 048

REACTIONS (2)
  - RENAL TRANSPLANT [None]
  - RHINORRHOEA [None]
